FAERS Safety Report 4599728-2 (Version None)
Quarter: 2005Q1

REPORT INFORMATION
  Report Type: 
  Country: None (occurrence: None)
  Receive Date: 20050307
  Receipt Date: 20050301
  Transmission Date: 20050727
  Serious: Yes (Other)
  Sender: FDA-Public Use
  Company Number: PHEH2005US02620

PATIENT
  Age: 100 Year
  Sex: Female

DRUGS (1)
  1. EXELON [Suspect]
     Indication: DEMENTIA
     Dosage: 6 MG, QD
     Route: 048
     Dates: start: 20030101

REACTIONS (2)
  - EXTRAPYRAMIDAL DISORDER [None]
  - MEDICATION ERROR [None]
